FAERS Safety Report 4396815-9 (Version None)
Quarter: 2004Q3

REPORT INFORMATION
  Report Type: 
  Country: None (occurrence: None)
  Receive Date: 20040709
  Receipt Date: 20040615
  Transmission Date: 20050211
  Serious: Yes (Other)
  Sender: FDA-Public Use
  Company Number: 2004221711FR

PATIENT
  Age: 70 Year
  Sex: Male

DRUGS (1)
  1. TRELSTAR [Suspect]
     Indication: PROSTATE CANCER
     Dates: start: 20000101

REACTIONS (1)
  - THROMBOCYTOPENIA [None]
